FAERS Safety Report 19442621 (Version 3)
Quarter: 2021Q4

REPORT INFORMATION
  Report Type: Spontaneous
  Country: US (occurrence: US)
  Receive Date: 20210621
  Receipt Date: 20211119
  Transmission Date: 20220304
  Serious: No
  Sender: FDA-Public Use
  Company Number: US-PFIZER INC-2021329847

PATIENT
  Sex: Female

DRUGS (1)
  1. PREMPRO [Suspect]
     Active Substance: ESTROGENS, CONJUGATED\MEDROXYPROGESTERONE ACETATE
     Indication: Menopause

REACTIONS (6)
  - Insomnia [Unknown]
  - Night sweats [Unknown]
  - Presyncope [Unknown]
  - Homicidal ideation [Unknown]
  - Depressed mood [Unknown]
  - Impaired work ability [Unknown]
